FAERS Safety Report 13998149 (Version 1)
Quarter: 2017Q3

REPORT INFORMATION
  Report Type: Spontaneous
  Country: CO (occurrence: CO)
  Receive Date: 20170921
  Receipt Date: 20170921
  Transmission Date: 20171128
  Serious: Yes (Hospitalization)
  Sender: FDA-Public Use
  Company Number: CO-FRESENIUS KABI-FK201707889

PATIENT
  Sex: Male

DRUGS (3)
  1. PARACETAMOL (MANUFACTURER UNKNOWN) [Suspect]
     Active Substance: ACETAMINOPHEN
     Indication: PAIN MANAGEMENT
     Route: 064
  2. METAMIZOLE (MANUFACTURER UNKNOWN) [Suspect]
     Active Substance: METAMIZOLE
     Indication: PAIN MANAGEMENT
     Route: 064
  3. INDOMETHACIN (MANUFACTURER UNKNOWN) [Suspect]
     Active Substance: INDOMETHACIN
     Indication: TOCOLYSIS
     Route: 064

REACTIONS (6)
  - Right ventricular failure [Recovered/Resolved]
  - Foetal exposure during pregnancy [Unknown]
  - Ductus arteriosus premature closure [Unknown]
  - Pulmonary hypertension [Recovered/Resolved]
  - Product use in unapproved indication [Unknown]
  - Tricuspid valve incompetence [Unknown]
